FAERS Safety Report 9310994 (Version 2)
Quarter: 2013Q4

REPORT INFORMATION
  Report Type: Spontaneous
  Country: US (occurrence: US)
  Receive Date: 20130528
  Receipt Date: 20131004
  Transmission Date: 20140711
  Serious: Yes (Other)
  Sender: FDA-Public Use
  Company Number: US-BAYER-2013-062766

PATIENT
  Age: 38 Year
  Sex: Female
  Weight: 69.84 kg

DRUGS (1)
  1. MIRENA [Suspect]
     Indication: CONTRACEPTION
     Dosage: 20 MCG/24HR, CONT
     Route: 015
     Dates: start: 20091222, end: 20130422

REACTIONS (4)
  - Device expulsion [None]
  - Amenorrhoea [Recovered/Resolved]
  - Pregnancy with contraceptive device [None]
  - Drug ineffective [None]
